FAERS Safety Report 4644762-7 (Version None)
Quarter: 2005Q2

REPORT INFORMATION
  Report Type: 
  Country: None (occurrence: None)
  Receive Date: 20050426
  Receipt Date: 20050406
  Transmission Date: 20051028
  Serious: Yes (Other)
  Sender: FDA-Public Use
  Company Number: 200511025JP

PATIENT
  Age: 94 Year
  Sex: Female

DRUGS (4)
  1. LASIX [Suspect]
     Route: 041
  2. SOLUTIONS FOR PARENTERAL NUTRITION [Concomitant]
  3. VITAMINS [Concomitant]
  4. TRACE ELEMENTS [Concomitant]

REACTIONS (1)
  - PEMPHIGOID [None]
